FAERS Safety Report 4377193-8 (Version None)
Quarter: 2004Q2

REPORT INFORMATION
  Report Type: 
  Country: None (occurrence: None)
  Receive Date: 20040614
  Receipt Date: 20040614
  Transmission Date: 20050107
  Serious: Yes (Death)
  Sender: FDA-Public Use
  Company Number: None

PATIENT
  Age: 78 Year
  Sex: Male
  Weight: 56.4 kg

DRUGS (6)
  1. TRISENOX [Suspect]
     Indication: MYELODYSPLASTIC SYNDROME
     Dosage: 25 MG/KG QD X 5 D IV
     Route: 042
     Dates: start: 20040524, end: 20040528
  2. ZYPREXA [Concomitant]
  3. FOLIC ACID [Concomitant]
  4. VITAMIN B6 [Concomitant]
  5. ATENOLOL [Concomitant]
  6. VITAMIN C [Concomitant]

REACTIONS (5)
  - ANAEMIA [None]
  - DYSPLASIA [None]
  - ELECTROCARDIOGRAM QT PROLONGED [None]
  - HYPOVOLAEMIA [None]
  - MARKEDLY REDUCED DIETARY INTAKE [None]
